FAERS Safety Report 16233449 (Version 1)
Quarter: 2019Q2

REPORT INFORMATION
  Report Type: Spontaneous
  Country: US (occurrence: US)
  Receive Date: 20190423
  Receipt Date: 20190423
  Transmission Date: 20190711
  Serious: Yes (Other)
  Sender: FDA-Public Use
  Company Number: None

PATIENT
  Age: 61 Year
  Sex: Male
  Weight: 112.5 kg

DRUGS (1)
  1. ALLIANCERX WALGREENS PRIME #16568 GLATIRAMER ACETATE 40 ML INJECTION [Suspect]
     Active Substance: GLATIRAMER ACETATE
     Indication: PROPHYLAXIS
     Dosage: ?          QUANTITY:1 INJECTION(S);OTHER FREQUENCY:3 X WEEK;?
     Route: 058
     Dates: start: 20190422, end: 20190422

REACTIONS (2)
  - Product substitution issue [None]
  - Adverse reaction [None]

NARRATIVE: CASE EVENT DATE: 20190422
